FAERS Safety Report 8935365 (Version 1)
Quarter: 2012Q4

REPORT INFORMATION
  Report Type: Spontaneous
  Country: US (occurrence: None)
  Receive Date: 20121127
  Receipt Date: 20121127
  Transmission Date: 20130627
  Serious: No
  Sender: FDA-Public Use
  Company Number: None

PATIENT
  Sex: Female

DRUGS (1)
  1. COPAXONE 20MG TEVA [Suspect]
     Indication: MS
     Dosage: 20mg daily subcutaneously
     Route: 058
     Dates: start: 20090127, end: 20121115

REACTIONS (1)
  - Neuralgia [None]
